FAERS Safety Report 21975882 (Version 1)
Quarter: 2023Q1

REPORT INFORMATION
  Report Type: Spontaneous
  Country: US (occurrence: US)
  Receive Date: 20230210
  Receipt Date: 20230210
  Transmission Date: 20230418
  Serious: No
  Sender: FDA-Public Use
  Company Number: US-drreddys-SPO/USA/23/0160385

PATIENT
  Age: 46 Year
  Sex: Male

DRUGS (1)
  1. ACCUTANE [Suspect]
     Active Substance: ISOTRETINOIN
     Indication: Product used for unknown indication
     Dosage: RMA ISSUE DATE: 25 AUGUST 2022 10:17:51 AM, 30 SEPTEMBER 2022 09:21:15 AM, 27 OCTOBER 2022 02:15:15

REACTIONS (1)
  - Abdominal pain upper [Unknown]
